FAERS Safety Report 21389667 (Version 1)
Quarter: 2022Q3

REPORT INFORMATION
  Report Type: Spontaneous
  Country: NL (occurrence: NL)
  Receive Date: 20220929
  Receipt Date: 20220929
  Transmission Date: 20221026
  Serious: Yes (Hospitalization)
  Sender: FDA-Public Use
  Company Number: None

PATIENT
  Sex: Female
  Weight: 65 kg

DRUGS (5)
  1. TRAMADOL [Suspect]
     Active Substance: TRAMADOL
     Indication: Pain
     Dosage: 100 MILLIGRAM DAILY; 2 X A DAY 1 PIECE , BRAND NAME NOT SPECIFIED , FORM STRENGTH : 50 MG , DURATION
     Dates: start: 20210101, end: 20210108
  2. DULOXETINE [Suspect]
     Active Substance: DULOXETINE
     Indication: Neuralgia
     Dosage: 1 X PER DAY 1 PIECE , CAPSULE MSR 60MG / BRAND NAME NOT SPECIFIED , FORM STRENGTH : 60 MG , THERAPY
     Dates: start: 20200210
  3. MOVICOLON [Concomitant]
     Active Substance: POLYETHYLENE GLYCOL 3350\POTASSIUM CHLORIDE\SODIUM BICARBONATE\SODIUM CHLORIDE
     Indication: Product used for unknown indication
     Dosage: POWDER FOR DRINK , MACROGOL/SALTS PDR V BEVERAGE (MOVIC/MOLAX/LAXT/GEN) / MOVICOLON POWDER FOR BEVER
  4. OMEPRAZOLE [Concomitant]
     Active Substance: OMEPRAZOLE
     Indication: Product used for unknown indication
     Dosage: FORM STRENGTH : 20 MG (MILLIGRAM) , CAPSULE MSR 20MG / BRAND NAME NOT SPECIFIED , THERAPY START DATE
  5. NAPROXEN [Concomitant]
     Active Substance: NAPROXEN
     Indication: Product used for unknown indication
     Dosage: FORM STRENGTH : 500 MG (MILLIGRAM) ,  TABLET MSR 500MG / BRAND NAME NOT SPECIFIED ,THERAPY START DAT

REACTIONS (1)
  - Loss of consciousness [Recovering/Resolving]
